FAERS Safety Report 9312114 (Version 2)
Quarter: 2013Q3

REPORT INFORMATION
  Report Type: Spontaneous
  Country: US (occurrence: US)
  Receive Date: 20130528
  Receipt Date: 20130729
  Transmission Date: 20140515
  Serious: Yes (Hospitalization)
  Sender: FDA-Public Use
  Company Number: US-BAXTER-2013BAX001269

PATIENT
  Age: 40 Year
  Sex: Female
  Weight: 75 kg

DRUGS (6)
  1. GAMMAGARD LIQUID [Suspect]
     Indication: IMMUNODEFICIENCY COMMON VARIABLE
     Route: 042
     Dates: start: 20130107, end: 20130107
  2. GAMMAGARD LIQUID [Suspect]
     Route: 042
     Dates: start: 20121226, end: 20121226
  3. GAMMAGARD LIQUID [Suspect]
     Route: 042
     Dates: start: 20121212, end: 20121212
  4. GAMMAGARD LIQUID [Suspect]
     Route: 042
  5. HYDROCORTISONE [Concomitant]
     Indication: ADDISON^S DISEASE
     Route: 048
  6. SYNTHROID [Concomitant]
     Indication: HYPOTHYROIDISM
     Route: 048

REACTIONS (12)
  - Paranasal sinus necrosis [Unknown]
  - Headache [Not Recovered/Not Resolved]
  - Nausea [Not Recovered/Not Resolved]
  - Vomiting [Not Recovered/Not Resolved]
  - Pyrexia [Not Recovered/Not Resolved]
  - Feeling abnormal [Not Recovered/Not Resolved]
  - Headache [Recovered/Resolved]
  - Nausea [Recovered/Resolved]
  - Vomiting [Recovered/Resolved]
  - Hypertension [Unknown]
  - Pain [Unknown]
  - Contusion [Unknown]
